FAERS Safety Report 5912092-9 (Version None)
Quarter: 2008Q4

REPORT INFORMATION
  Report Type: 
  Country: None (occurrence: None)
  Receive Date: 20081007
  Receipt Date: 20081007
  Transmission Date: 20090506
  Serious: Yes (Other)
  Sender: FDA-Public Use
  Company Number: None

PATIENT
  Sex: Female
  Weight: 31.2982 kg

DRUGS (3)
  1. RISPERIDONE [Suspect]
     Indication: ASPERGER'S DISORDER
     Dosage: 1.5 MG PO QD AS NEEDED
     Route: 048
  2. RISPERIDONE [Suspect]
     Indication: AUTISM
     Dosage: 1.5 MG PO QD AS NEEDED
     Route: 048
  3. RISPERIDONE [Suspect]
     Indication: AUTISM SPECTRUM DISORDER
     Dosage: 1.5 MG PO QD AS NEEDED
     Route: 048

REACTIONS (3)
  - AGGRESSION [None]
  - ANGER [None]
  - THERAPEUTIC RESPONSE UNEXPECTED WITH DRUG SUBSTITUTION [None]
